FAERS Safety Report 6135249-3 (Version None)
Quarter: 2009Q1

REPORT INFORMATION
  Report Type: 
  Country: None (occurrence: None)
  Receive Date: 20090327
  Receipt Date: 20090317
  Transmission Date: 20090719
  Serious: Yes (Other)
  Sender: FDA-Public Use
  Company Number: US-PFIZER INC-2009187688

PATIENT
  Sex: Female
  Weight: 58.957 kg

DRUGS (1)
  1. DETROL LA [Suspect]
     Indication: HYPERTONIC BLADDER
     Dosage: UNK
     Dates: start: 20090101, end: 20090101

REACTIONS (2)
  - BLADDER DISORDER [None]
  - CONSTIPATION [None]
